FAERS Safety Report 15866220 (Version 8)
Quarter: 2021Q3

REPORT INFORMATION
  Report Type: Spontaneous
  Country: US (occurrence: US)
  Receive Date: 20190125
  Receipt Date: 20210702
  Transmission Date: 20211014
  Serious: Yes (Hospitalization)
  Sender: FDA-Public Use
  Company Number: US-PFIZER INC-2019034117

PATIENT
  Age: 67 Year
  Sex: Female

DRUGS (2)
  1. XALKORI [Suspect]
     Active Substance: CRIZOTINIB
     Indication: NON-SMALL CELL LUNG CANCER
     Dosage: 250 MG, 2X/DAY (TWICE A DAY)
  2. XALKORI [Suspect]
     Active Substance: CRIZOTINIB
     Dosage: UNK

REACTIONS (8)
  - Nasopharyngitis [Unknown]
  - Laryngitis [Unknown]
  - Gait disturbance [Unknown]
  - Eating disorder [Unknown]
  - Neoplasm progression [Unknown]
  - Confusional state [Unknown]
  - Back pain [Unknown]
  - Infection [Recovering/Resolving]
